FAERS Safety Report 8765091 (Version 3)
Quarter: 2012Q4

REPORT INFORMATION
  Report Type: 
  Country: US (occurrence: US)
  Receive Date: 20120903
  Receipt Date: 20120920
  Transmission Date: 20130627
  Serious: Yes (Hospitalization)
  Sender: FDA-Public Use
  Company Number: US-BIOGENIDEC-2012BI034259

PATIENT
  Age: 34 Year
  Sex: Male

DRUGS (1)
  1. TYSABRI [Suspect]
     Indication: MULTIPLE SCLEROSIS
     Route: 042
     Dates: start: 20120816

REACTIONS (5)
  - Tonsillitis [Recovered/Resolved]
  - Muscular weakness [Recovered/Resolved]
  - Body temperature [Recovered/Resolved]
  - Middle insomnia [Recovered/Resolved]
  - Visual impairment [Not Recovered/Not Resolved]
